FAERS Safety Report 7353506-X (Version None)
Quarter: 2011Q1

REPORT INFORMATION
  Report Type: 
  Country: None (occurrence: None)
  Receive Date: 20110315
  Receipt Date: 20110304
  Transmission Date: 20110831
  Serious: Yes (Other)
  Sender: FDA-Public Use
  Company Number: PT-JNJFOC-20110300360

PATIENT
  Age: 34 Year
  Sex: Female

DRUGS (8)
  1. REMICADE [Suspect]
     Route: 042
  2. REMICADE [Suspect]
     Indication: CROHN'S DISEASE
     Route: 042
  3. REMICADE [Suspect]
     Route: 042
  4. REMICADE [Suspect]
     Indication: ENTERITIS
     Route: 042
  5. REMICADE [Suspect]
     Route: 042
  6. REMICADE [Suspect]
     Route: 042
  7. REMICADE [Suspect]
     Route: 042
  8. REMICADE [Suspect]
     Route: 042

REACTIONS (12)
  - MUSCLE RIGIDITY [None]
  - ERYTHEMA [None]
  - DIARRHOEA [None]
  - ORAL HERPES [None]
  - FATIGUE [None]
  - DRUG INEFFECTIVE [None]
  - TACHYCARDIA [None]
  - MIGRAINE [None]
  - PSORIASIS [None]
  - ASTHENIA [None]
  - OEDEMA [None]
  - PARAESTHESIA [None]
